FAERS Safety Report 25873426 (Version 1)
Quarter: 2025Q4

REPORT INFORMATION
  Report Type: Spontaneous
  Country: US (occurrence: None)
  Receive Date: 20251001
  Receipt Date: 20251001
  Transmission Date: 20260118
  Serious: Yes (Other)
  Sender: FDA-CTU
  Company Number: None

PATIENT
  Age: 35 Year
  Sex: Male

DRUGS (3)
  1. CYANOCOBALAMIN\NALTREXONE\TOPIRAMATE [Suspect]
     Active Substance: CYANOCOBALAMIN\NALTREXONE\TOPIRAMATE
     Indication: Weight decreased
     Dosage: OTHER FREQUENCY : QOD;?
     Route: 048
     Dates: start: 20250922, end: 20251001
  2. BUPROPION [Suspect]
     Active Substance: BUPROPION
     Dosage: OTHER FREQUENCY : 24 HOUR;?
     Route: 048
     Dates: start: 20250922, end: 20251001
  3. METFORMIN [Suspect]
     Active Substance: METFORMIN HYDROCHLORIDE

REACTIONS (2)
  - Product substitution issue [None]
  - Gastrointestinal disorder [None]

NARRATIVE: CASE EVENT DATE: 20251001
